FAERS Safety Report 17636105 (Version 1)
Quarter: 2020Q2

REPORT INFORMATION
  Report Type: Spontaneous
  Country: US (occurrence: US)
  Receive Date: 20200403
  Receipt Date: 20200403
  Transmission Date: 20200713
  Serious: No
  Sender: FDA-Public Use
  Company Number: None

PATIENT
  Age: 26 Year
  Sex: Male

DRUGS (1)
  1. FORTEO [Suspect]
     Active Substance: TERIPARATIDE
     Route: 058
     Dates: start: 20200403

REACTIONS (4)
  - Vomiting [None]
  - Therapy cessation [None]
  - Nausea [None]
  - Cough [None]

NARRATIVE: CASE EVENT DATE: 20200403
